FAERS Safety Report 8025224-6 (Version None)
Quarter: 2012Q1

REPORT INFORMATION
  Report Type: 
  Country: None (occurrence: None)
  Receive Date: 20120105
  Receipt Date: 20111228
  Transmission Date: 20120608
  Serious: Yes (Hospitalization)
  Sender: FDA-Public Use
  Company Number: GB-GLAXOSMITHKLINE-Z0013494A

PATIENT
  Sex: Male
  Weight: 66.7 kg

DRUGS (4)
  1. PREDNISOLONE [Concomitant]
     Dosage: 60MG PER DAY
     Route: 048
  2. OMEPRAZOLE [Concomitant]
     Indication: PROPHYLAXIS
     Dosage: 20MG PER DAY
     Route: 048
  3. OFATUMUMAB [Suspect]
     Indication: CHRONIC LYMPHOCYTIC LEUKAEMIA REFRACTORY
     Route: 042
     Dates: start: 20111115, end: 20111219
  4. ACYCLOVIR [Concomitant]
     Indication: ANTIVIRAL PROPHYLAXIS
     Dosage: 200MG THREE TIMES PER DAY
     Route: 048

REACTIONS (5)
  - HYDRONEPHROSIS [None]
  - NEUTROPENIC SEPSIS [None]
  - RENAL FAILURE ACUTE [None]
  - ABDOMINAL PAIN [None]
  - HYPOTENSION [None]
